FAERS Safety Report 20165395 (Version 1)
Quarter: 2021Q4

REPORT INFORMATION
  Report Type: Spontaneous
  Country: FR (occurrence: None)
  Receive Date: 20211209
  Receipt Date: 20211209
  Transmission Date: 20220303
  Serious: Yes (Hospitalization, Other)
  Sender: FDA-Public Use
  Company Number: FR-SA-SAC20211116000060

PATIENT
  Age: 65 Year
  Sex: Female

DRUGS (27)
  1. CYTARABINE [Suspect]
     Active Substance: CYTARABINE
     Indication: Product used for unknown indication
     Dosage: 40 MG, SINGLE (INDUCTION 2, DAY 2)
     Route: 065
     Dates: start: 20210521, end: 20210521
  2. CYTARABINE [Suspect]
     Active Substance: CYTARABINE
     Dosage: 40 MG, SINGLE (INDUCTION 1, DAY 2)
     Route: 065
     Dates: start: 20210422, end: 20210422
  3. INOTUZUMAB OZOGAMICIN [Suspect]
     Active Substance: INOTUZUMAB OZOGAMICIN
     Indication: Product used for unknown indication
     Dosage: 0.87 MG, SINGLE (INDUCTION 2, DAY 1)
     Route: 065
     Dates: start: 20210527, end: 20210527
  4. INOTUZUMAB OZOGAMICIN [Suspect]
     Active Substance: INOTUZUMAB OZOGAMICIN
     Dosage: 1.37 MG, SINGLE (INDUCTION 1, DAY15)
     Route: 065
     Dates: start: 20210505, end: 20210505
  5. INOTUZUMAB OZOGAMICIN [Suspect]
     Active Substance: INOTUZUMAB OZOGAMICIN
     Dosage: 1.37 MG, SINGLE (INDUCTION 1, DAY1)
     Route: 065
     Dates: start: 20210421, end: 20210421
  6. INOTUZUMAB OZOGAMICIN [Suspect]
     Active Substance: INOTUZUMAB OZOGAMICIN
     Dosage: 1.37 MG, SINGLE (INDUCTION 1, DAY8)
     Route: 065
     Dates: start: 20210428, end: 20210428
  7. INOTUZUMAB OZOGAMICIN [Suspect]
     Active Substance: INOTUZUMAB OZOGAMICIN
     Dosage: 0.87 MG, SINGLE (INDUCTION 2, DAY 1)
     Route: 065
     Dates: start: 20210520, end: 20210520
  8. VINCRISTINE SULFATE [Suspect]
     Active Substance: VINCRISTINE SULFATE
     Indication: Product used for unknown indication
     Dosage: 2 MG, SINGLE (INDUCTION 1, DAY8)
     Route: 065
     Dates: start: 20210428, end: 20210428
  9. VINCRISTINE SULFATE [Suspect]
     Active Substance: VINCRISTINE SULFATE
     Dosage: 2 MG, SINGLE (INDUCTION 1, DAY1)
     Route: 065
     Dates: start: 20210424, end: 20210424
  10. VINCRISTINE SULFATE [Suspect]
     Active Substance: VINCRISTINE SULFATE
     Dosage: 2 MG, SINGLE (INDUCTION 1, DAY22)
     Route: 065
     Dates: start: 20210512, end: 20210512
  11. VINCRISTINE SULFATE [Suspect]
     Active Substance: VINCRISTINE SULFATE
     Dosage: 2 MG, SINGLE (INDUCTION 1, DAY15)
     Route: 065
     Dates: start: 20210505, end: 20210505
  12. METHOTREXATE [Suspect]
     Active Substance: METHOTREXATE
     Indication: Product used for unknown indication
     Dosage: 15 MG, SINGLE (INDUCTION 1, DAY2)
     Route: 037
     Dates: start: 20210422, end: 20210422
  13. CYCLOPHOSPHAMIDE [Suspect]
     Active Substance: CYCLOPHOSPHAMIDE
     Indication: Product used for unknown indication
     Dosage: 51 MG, SINGLE (INDUCTION 2, DAY 3)
     Route: 065
     Dates: start: 20210522, end: 20210522
  14. CYCLOPHOSPHAMIDE [Suspect]
     Active Substance: CYCLOPHOSPHAMIDE
     Dosage: 51 MG, SINGLE (INDUCTION 2, DAY 2)
     Route: 065
     Dates: start: 20210521, end: 20210521
  15. CYCLOPHOSPHAMIDE [Suspect]
     Active Substance: CYCLOPHOSPHAMIDE
     Dosage: 51 MG, SINGLE (INDUCTION 2, DAY 1)
     Route: 065
     Dates: start: 20210520, end: 20210520
  16. VALACYCLOVIR HYDROCHLORIDE [Concomitant]
     Active Substance: VALACYCLOVIR HYDROCHLORIDE
     Indication: Antiviral prophylaxis
     Dosage: 500 MG, QD
     Route: 065
     Dates: start: 20210414
  17. FILGRASTIM [Concomitant]
     Active Substance: FILGRASTIM
     Indication: Product used for unknown indication
     Dosage: 1 DF, QD
     Route: 058
  18. RACECADOTRIL [Concomitant]
     Active Substance: RACECADOTRIL
     Indication: Diarrhoea
     Dosage: 1 DF, TID
     Route: 065
  19. METOCLOPRAMIDE HYDROCHLORIDE [Concomitant]
     Active Substance: METOCLOPRAMIDE HYDROCHLORIDE
     Indication: Nausea
     Dosage: 1 DF, EVERY 8 HOURS, PRN
     Route: 065
  20. TRAMADOL HYDROCHLORIDE [Concomitant]
     Active Substance: TRAMADOL HYDROCHLORIDE
     Indication: Pain
     Dosage: 1 DF, QID, AS NEEDED
     Route: 065
  21. OXAZEPAM [Concomitant]
     Active Substance: OXAZEPAM
     Indication: Anxiety
     Dosage: 1 DF, PRN, MAXIMUM 3 TIMES A DAY
     Route: 065
     Dates: start: 20210422
  22. GLUCOSE MONOHYDRATE/ALUMINIUM MAGNESIUM SILICATE/ALUMINIUM HYDROXIDE-M [Concomitant]
     Indication: Diarrhoea
     Dosage: 1 DF, TID
     Route: 065
  23. ONDANSETRON HYDROCHLORIDE [Concomitant]
     Active Substance: ONDANSETRON HYDROCHLORIDE
     Indication: Nausea
     Dosage: 1 DF, BID UNTIL DAY 5 AFTER CHEMOTHERAPY, AS NEEDED
     Route: 065
  24. DEFERASIROX [Concomitant]
     Active Substance: DEFERASIROX
     Indication: Iron overload
     Dosage: 2 DF, QD
     Route: 065
     Dates: start: 20210831, end: 20210923
  25. ESCITALOPRAM [Concomitant]
     Active Substance: ESCITALOPRAM OXALATE
     Indication: Anxiety
     Dosage: 10 MG, QD
     Route: 065
  26. POLYETHYLENE GLYCOL 3350\POTASSIUM CHLORIDE\SODIUM BICARBONATE\SODIUM [Concomitant]
     Active Substance: POLYETHYLENE GLYCOL 3350\POTASSIUM CHLORIDE\SODIUM BICARBONATE\SODIUM CHLORIDE
     Indication: Constipation
     Dosage: 2 SACHETS, QD
     Route: 065
  27. ATOVAQUONE [Concomitant]
     Active Substance: ATOVAQUONE
     Indication: Infection prophylaxis
     Dosage: 750 MG, BID
     Route: 048
     Dates: start: 20210608

REACTIONS (12)
  - Pancytopenia [Unknown]
  - Staphylococcal infection [Recovered/Resolved]
  - Febrile bone marrow aplasia [Recovered/Resolved]
  - C-reactive protein increased [Unknown]
  - Blood alkaline phosphatase increased [Unknown]
  - Pyrexia [Unknown]
  - Skin infection [Unknown]
  - Medical device site pain [Unknown]
  - Alanine aminotransferase increased [Unknown]
  - Serum ferritin increased [Unknown]
  - Diarrhoea [Unknown]
  - Gamma-glutamyltransferase increased [Unknown]

NARRATIVE: CASE EVENT DATE: 20210901
